FAERS Safety Report 14590451 (Version 1)
Quarter: 2018Q1

REPORT INFORMATION
  Report Type: Spontaneous
  Country: CN (occurrence: CN)
  Receive Date: 20180302
  Receipt Date: 20180302
  Transmission Date: 20180509
  Serious: Yes (Death, Other)
  Sender: FDA-Public Use
  Company Number: CN-CIPLA LTD.-2018CN10342

PATIENT

DRUGS (10)
  1. GEMCITABINE [Suspect]
     Active Substance: GEMCITABINE\GEMCITABINE HYDROCHLORIDE
     Indication: BLADDER CANCER
     Dosage: UNK
     Route: 065
  2. OXALIPLATIN. [Suspect]
     Active Substance: OXALIPLATIN
     Indication: BLADDER CANCER
     Dosage: UNK
     Route: 065
  3. MESNA. [Suspect]
     Active Substance: MESNA
     Indication: BLADDER CANCER
     Dosage: UNK
     Route: 065
  4. EPIRUBICIN [Suspect]
     Active Substance: EPIRUBICIN
     Indication: BLADDER CANCER
     Dosage: UNK
     Route: 065
  5. IFOSFAMIDE. [Suspect]
     Active Substance: IFOSFAMIDE
     Indication: BLADDER CANCER
     Dosage: UNK
     Route: 065
  6. DOCETAXEL. [Suspect]
     Active Substance: DOCETAXEL
     Indication: BLADDER CANCER
     Dosage: UNK
     Route: 065
  7. PACLITAXEL. [Suspect]
     Active Substance: PACLITAXEL
     Indication: BLADDER CANCER
     Dosage: UNK
     Route: 065
  8. CISPLATIN. [Suspect]
     Active Substance: CISPLATIN
     Indication: BLADDER CANCER
     Dosage: UNK
     Route: 065
  9. CARBOPLATIN. [Suspect]
     Active Substance: CARBOPLATIN
     Indication: BLADDER CANCER
     Dosage: UNK
     Route: 065
  10. CAPECITABINE. [Suspect]
     Active Substance: CAPECITABINE
     Indication: BLADDER CANCER
     Dosage: UNK
     Route: 065

REACTIONS (3)
  - Metastatic carcinoma of the bladder [Fatal]
  - Multiple-drug resistance [Unknown]
  - Disease recurrence [Unknown]
